FAERS Safety Report 12281402 (Version 1)
Quarter: 2016Q2

REPORT INFORMATION
  Report Type: Spontaneous
  Country: US (occurrence: None)
  Receive Date: 20160418
  Receipt Date: 20160418
  Transmission Date: 20160815
  Serious: Yes (Hospitalization)
  Sender: FDA-Public Use
  Company Number: None

PATIENT
  Age: 35 Year
  Sex: Female
  Weight: 65.8 kg

DRUGS (12)
  1. DECADRON [Concomitant]
     Active Substance: DEXAMETHASONE
  2. IT ARAC [Concomitant]
  3. PEGASPARGASE750IU/5ML [Suspect]
     Active Substance: PEGASPARGASE
     Indication: ACUTE LYMPHOCYTIC LEUKAEMIA
     Dosage: 4275 IU/100ML NS DAY 4,18 IV
     Route: 042
     Dates: start: 20160308, end: 20160321
  4. BENADRYL [Concomitant]
     Active Substance: DIPHENHYDRAMINE HYDROCHLORIDE
  5. ASPARGINASE [Concomitant]
     Active Substance: ASPARAGINASE
  6. EPINEPHRINE. [Concomitant]
     Active Substance: EPINEPHRINE
  7. SOLU-MEDROL [Concomitant]
     Active Substance: METHYLPREDNISOLONE SODIUM SUCCINATE
  8. DAUNORUBICIN [Concomitant]
     Active Substance: DAUNORUBICIN
  9. VINCRISTINE [Concomitant]
     Active Substance: VINCRISTINE
  10. PEG-ASPARGASE [Concomitant]
  11. IT MTX [Concomitant]
  12. BMBX [Concomitant]

REACTIONS (2)
  - Cerebral venous thrombosis [None]
  - Haemorrhage intracranial [None]

NARRATIVE: CASE EVENT DATE: 20160331
